FAERS Safety Report 14426084 (Version 1)
Quarter: 2018Q1

REPORT INFORMATION
  Report Type: Spontaneous
  Country: US (occurrence: US)
  Receive Date: 20180122
  Receipt Date: 20180122
  Transmission Date: 20180509
  Serious: No
  Sender: FDA-Public Use
  Company Number: None

PATIENT
  Age: 17 Year
  Sex: Male
  Weight: 35.8 kg

DRUGS (1)
  1. CIPRO [Suspect]
     Active Substance: CIPROFLOXACIN HYDROCHLORIDE
     Indication: BACTERIAL INFECTION
     Dosage: DATES OF USE - NOT STARTED YET
     Route: 048

REACTIONS (2)
  - Vomiting [None]
  - Product use complaint [None]
